FAERS Safety Report 8099330-4 (Version None)
Quarter: 2012Q1

REPORT INFORMATION
  Report Type: 
  Country: None (occurrence: None)
  Receive Date: 20120131
  Receipt Date: 20120123
  Transmission Date: 20120608
  Serious: Yes (Hospitalization)
  Sender: FDA-Public Use
  Company Number: TW-PFIZER INC-2010071839

PATIENT
  Age: 59 Year
  Sex: Male
  Weight: 58 kg

DRUGS (8)
  1. PREDNISOLONE [Suspect]
     Indication: PROSTATE CANCER
     Dosage: 5 MG, 2X/DAY
     Route: 048
     Dates: start: 20100426
  2. CHLORHEXIDINE [Concomitant]
     Indication: PROPHYLAXIS
     Dosage: UNK
     Dates: start: 20100510
  3. ZOLEDRONIC ACID [Concomitant]
     Indication: METASTASES TO BONE
     Dosage: UNK
     Dates: start: 20090609
  4. SUNITINIB MALATE [Suspect]
     Indication: PROSTATE CANCER
     Dosage: 37.5 MG, 1X/DAY
     Route: 048
     Dates: start: 20100426
  5. GABAPENTIN [Concomitant]
     Indication: BONE PAIN
     Dosage: UNK
     Dates: start: 20100510
  6. PREDNISOLONE [Concomitant]
     Dosage: UNK
     Dates: start: 20091002, end: 20100425
  7. BUNAZOSIN [Concomitant]
     Indication: HYPERTENSION
     Dosage: UNK
     Dates: start: 20100510
  8. FENTANYL [Concomitant]
     Indication: BONE PAIN
     Dosage: UNK
     Dates: start: 20100407

REACTIONS (3)
  - PYREXIA [None]
  - CELLULITIS [None]
  - DIZZINESS [None]
